FAERS Safety Report 8049748-0 (Version None)
Quarter: 2012Q1

REPORT INFORMATION
  Report Type: 
  Country: None (occurrence: None)
  Receive Date: 20120117
  Receipt Date: 20120102
  Transmission Date: 20120608
  Serious: Yes (Hospitalization)
  Sender: FDA-Public Use
  Company Number: FI-CELGENEUS-055-50794-12010013

PATIENT
  Sex: Male

DRUGS (8)
  1. BISOPROLOL FUMARATE [Concomitant]
     Dosage: 2.5 MILLIGRAM
     Route: 048
  2. OMEPRAZOLE [Concomitant]
     Dosage: 20 MILLIGRAM
     Route: 048
  3. VIDAZA [Suspect]
     Indication: MYELODYSPLASTIC SYNDROME
     Route: 058
     Dates: start: 20110718
  4. FURESIS [Concomitant]
     Dosage: 20 MILLIGRAM
     Route: 048
  5. COVERSYL NOVUM [Concomitant]
     Dosage: 2.5 MILLIGRAM
     Route: 048
     Dates: start: 20110728
  6. SPIRIVA [Concomitant]
     Route: 055
  7. ALLONOL [Concomitant]
     Dosage: 200 MILLIGRAM
     Route: 048
     Dates: start: 20110718
  8. SYMBICORT TURBOHALER FORTE [Concomitant]
     Route: 055

REACTIONS (4)
  - PYREXIA [None]
  - PULMONARY FIBROSIS [None]
  - DRUG INEFFECTIVE [None]
  - C-REACTIVE PROTEIN INCREASED [None]
